FAERS Safety Report 9544140 (Version 1)
Quarter: 2013Q3

REPORT INFORMATION
  Report Type: Spontaneous
  Country: IT (occurrence: IT)
  Receive Date: 20130923
  Receipt Date: 20130923
  Transmission Date: 20140515
  Serious: Yes (Other)
  Sender: FDA-Public Use
  Company Number: IT-TEVA-431622ISR

PATIENT
  Age: 43 Year
  Sex: Male

DRUGS (2)
  1. PRAMIPEXOLE [Suspect]
     Indication: PARKINSON^S DISEASE
     Dosage: 3.5 MILLIGRAM DAILY;
     Route: 065
  2. LEVODOPA [Suspect]
     Indication: PARKINSON^S DISEASE
     Dosage: 250MG
     Route: 065

REACTIONS (4)
  - Drug dependence [Recovered/Resolved]
  - Pathological gambling [Recovered/Resolved]
  - Compulsive shopping [Recovered/Resolved]
  - Hypersexuality [Recovered/Resolved]
